FAERS Safety Report 4519324-2 (Version None)
Quarter: 2004Q4

REPORT INFORMATION
  Report Type: 
  Country: None (occurrence: None)
  Receive Date: 20041206
  Receipt Date: 20041129
  Transmission Date: 20050328
  Serious: Yes (Other)
  Sender: FDA-Public Use
  Company Number: PL-GLAXOSMITHKLINE-B0358859A

PATIENT
  Sex: Female
  Weight: 27 kg

DRUGS (4)
  1. ZINACEF [Suspect]
     Indication: BRONCHITIS
     Dosage: 750MG UNKNOWN
     Route: 030
     Dates: start: 20041104, end: 20041104
  2. FLAVAMED [Concomitant]
     Indication: BRONCHITIS
     Dosage: 750MG SINGLE DOSE
     Route: 048
     Dates: start: 20041104, end: 20041104
  3. ALBUTEROL [Concomitant]
     Route: 065
  4. KLACID [Concomitant]
     Indication: BRONCHITIS
     Route: 065

REACTIONS (4)
  - ADVERSE DRUG REACTION [None]
  - BRONCHOSPASM [None]
  - DYSPNOEA [None]
  - URTICARIA [None]
